FAERS Safety Report 4665731-7 (Version None)
Quarter: 2005Q2

REPORT INFORMATION
  Report Type: 
  Country: None (occurrence: None)
  Receive Date: 20050519
  Receipt Date: 20050225
  Transmission Date: 20051028
  Serious: Yes (Death)
  Sender: FDA-Public Use
  Company Number: GB-BOEHRINGER INGELHEIM PHARMACEUTICALS, INC.-2005-UK-00329UK

PATIENT
  Sex: Male

DRUGS (4)
  1. ATROVENT [Suspect]
     Route: 055
  2. SALBUTAMOL [Suspect]
  3. PERINDOPRIL [Suspect]
  4. SYMBICORT [Suspect]
     Dosage: 400/12MCG

REACTIONS (1)
  - CHRONIC OBSTRUCTIVE PULMONARY DISEASE [None]
